FAERS Safety Report 7076452-8 (Version None)
Quarter: 2010Q4

REPORT INFORMATION
  Report Type: 
  Country: None (occurrence: None)
  Receive Date: 20101101
  Receipt Date: 20101018
  Transmission Date: 20110411
  Serious: No
  Sender: FDA-Public Use
  Company Number: CA-ELI_LILLY_AND_COMPANY-CA201010003796

PATIENT
  Sex: Female

DRUGS (39)
  1. ZYPREXA [Suspect]
     Dosage: 5 MG, EACH EVENING
  2. ZYPREXA [Suspect]
     Dosage: 15MG AT BEDTIME
  3. ZYPREXA [Suspect]
     Dosage: 15MG AT BEDTIME
  4. ZYPREXA [Suspect]
     Dosage: 5 MG, AT BEDTIME
  5. ZYPREXA [Suspect]
     Dosage: 15MG AT BEDTIME
  6. ZYPREXA [Suspect]
     Dosage: 30 MG, AT BEDTIME
     Route: 048
  7. ZYPREXA [Suspect]
     Dosage: 20 MG, AT BEDTIME
     Route: 048
  8. CLONAZEPAM [Concomitant]
     Dosage: 0.5 MG, 2/D
  9. CLONAZEPAM [Concomitant]
     Dosage: 0.5 MG, 2/D FOR THREE WEEKS
  10. CLONAZEPAM [Concomitant]
     Dosage: 0.5 MG, 2/D
  11. CLONAZEPAM [Concomitant]
     Dosage: 0.5 MG, 2/D WHEN NEEDED
  12. EFFEXOR [Concomitant]
     Dosage: 2 CAPSULES AT 8AM
  13. EFFEXOR [Concomitant]
     Dosage: USE AS DIRECTED
  14. PRILOSEC [Concomitant]
     Dosage: 20 MG, DAILY (1/D)
  15. PRILOSEC [Concomitant]
     Dosage: 20 MG, AT BEDTIME FOR THREE WEEKS
  16. PRILOSEC [Concomitant]
     Dosage: 20 MG, TWICE DAILY
  17. PRILOSEC [Concomitant]
     Dosage: 20 MG, DAILY (1/D)
  18. VIOXX [Concomitant]
     Dosage: TAKE 1 OR 2 TABLETS ONCE DAILY WHEN NEEDED
  19. VIOXX [Concomitant]
     Dosage: 25 MG, DAILY (1/D) FOR THREE WEEKS
  20. LORAZEPAM [Concomitant]
     Dosage: TAKE 1 TABLET EVERY NIGHT AT BEDTIME
  21. LORAZEPAM [Concomitant]
     Dosage: TAKE ONE TABLET EVERY NIGHT AT BEDTIME WHEN NEEDED
  22. TEMAZEPAM [Concomitant]
     Dosage: TAKE 30MG EVERY NIGHT AT BEDTIME WHEN NEEDED
  23. NOVAMOXIN [Concomitant]
     Dosage: 500 MG, 3/D FOR TEN DAYS
  24. FUCITHALMIC [Concomitant]
     Dosage: 1 DROP FOUR TIMES ADAY FOR 7 DAYS
  25. DESOGESTREL AND ETHINYL ESTRADIOL [Concomitant]
     Dosage: TAKE AS DIRECTED
  26. MACROBID [Concomitant]
     Dosage: 100 MG, 2/D FOR ONE WEEK
  27. KETOCONAZOLE [Concomitant]
     Dosage: 200 MG, DAILY (1/D) FOR TWO WEEKS
  28. CELEXA [Concomitant]
     Dosage: 20 MG, DAILY (1/D)
  29. CELEXA [Concomitant]
     Dosage: 50 MG DAILY
  30. CELEXA [Concomitant]
     Dosage: 60MG IN THE MORNING
  31. SYNPHASIC [Concomitant]
     Dosage: TAKE AS DIRECTED
  32. DIANE - 35 [Concomitant]
     Dosage: TAKE AS DIRECTED
  33. SEROQUEL [Concomitant]
     Dosage: 100 MG, IN THE MORNING AND 500MG AT BEDTIME
  34. SEROQUEL [Concomitant]
     Dosage: 150MG IN THE MORNING AND 400MG AT BEDITME
  35. SEROQUEL [Concomitant]
     Dosage: 150MG IN THE MORNING
  36. SEROQUEL [Concomitant]
     Dosage: 400MG AT BEDTIME
  37. SEROQUEL [Concomitant]
     Dosage: 200 MG IN THE MORNIG AND 400MG AT BEDTIME
  38. SEROQUEL [Concomitant]
     Dosage: 150MG AT NIGHT ALONG WITH TWO TABLETS OF 200MG. TOTAL 550MG
  39. SEROQUEL [Concomitant]
     Dosage: 200 MG, IN THE MORNING AND 600 MG AT NIGHT

REACTIONS (11)
  - ANAEMIA [None]
  - ASPARTATE AMINOTRANSFERASE INCREASED [None]
  - BLOOD ALKALINE PHOSPHATASE INCREASED [None]
  - BLOOD TRIGLYCERIDES INCREASED [None]
  - DIABETES MELLITUS [None]
  - GLOMERULAR FILTRATION RATE DECREASED [None]
  - HAEMATEMESIS [None]
  - LOW DENSITY LIPOPROTEIN INCREASED [None]
  - OBESITY [None]
  - OVERDOSE [None]
  - TOTAL CHOLESTEROL/HDL RATIO DECREASED [None]
